FAERS Safety Report 22172500 (Version 6)
Quarter: 2023Q4

REPORT INFORMATION
  Report Type: Report from Study
  Country: CA (occurrence: CA)
  Receive Date: 20230404
  Receipt Date: 20231218
  Transmission Date: 20240109
  Serious: Yes (Hospitalization)
  Sender: FDA-Public Use
  Company Number: CA-002147023-NVSC2023CA071169

PATIENT
  Age: 54 Year
  Sex: Female

DRUGS (2)
  1. MAYZENT [Suspect]
     Active Substance: SIPONIMOD
     Indication: Product used for unknown indication
     Dosage: UNK
     Route: 048
     Dates: start: 20210916
  2. MAYZENT [Suspect]
     Active Substance: SIPONIMOD
     Dosage: 0.5 DOSAGE FORM, QD (1 MG)
     Route: 048
     Dates: start: 20230927

REACTIONS (4)
  - Fall [Recovering/Resolving]
  - Gait disturbance [Unknown]
  - General physical health deterioration [Unknown]
  - Wrong technique in product usage process [Unknown]

NARRATIVE: CASE EVENT DATE: 20221219
